FAERS Safety Report 9636144 (Version 2)
Quarter: 2013Q4

REPORT INFORMATION
  Report Type: Spontaneous
  Country: AR (occurrence: AR)
  Receive Date: 20131021
  Receipt Date: 20131030
  Transmission Date: 20140711
  Serious: Yes (Other)
  Sender: FDA-Public Use
  Company Number: AR-AMGEN-ARGSP2013073455

PATIENT
  Age: 75 Year
  Sex: Male

DRUGS (4)
  1. ENBREL [Suspect]
     Indication: RHEUMATOID ARTHRITIS
     Dosage: 50 MG, EVERY 10 DAYS
     Route: 058
     Dates: start: 20100611, end: 20130930
  2. ENBREL [Suspect]
     Dosage: 50 MG, EVERY 10 DAYS
     Route: 058
     Dates: start: 201310
  3. CARVEDIOL [Concomitant]
     Dosage: UNK
     Route: 048
     Dates: start: 2010
  4. ALDACTONE                          /00006201/ [Concomitant]
     Dosage: UNK
     Route: 048
     Dates: start: 2010

REACTIONS (2)
  - Peripheral arterial occlusive disease [Recovering/Resolving]
  - Blood disorder [Recovering/Resolving]
